FAERS Safety Report 12552915 (Version 2)
Quarter: 2016Q3

REPORT INFORMATION
  Report Type: Report from Study
  Country: BR (occurrence: BR)
  Receive Date: 20160713
  Receipt Date: 20160826
  Transmission Date: 20161109
  Serious: Yes (Hospitalization, Other)
  Sender: FDA-Public Use
  Company Number: BR-JNJFOC-20160704356

PATIENT
  Age: 86 Year
  Sex: Female

DRUGS (1)
  1. IMBRUVICA [Suspect]
     Active Substance: IBRUTINIB
     Indication: CHRONIC LYMPHOCYTIC LEUKAEMIA
     Route: 048
     Dates: start: 201601

REACTIONS (8)
  - Sedation [Unknown]
  - Somnolence [Unknown]
  - Syncope [Unknown]
  - Malaise [Unknown]
  - Haemorrhage [Unknown]
  - Hospitalisation [Unknown]
  - Chronic lymphocytic leukaemia [Unknown]
  - Asthenia [Unknown]
